FAERS Safety Report 20526294 (Version 1)
Quarter: 2022Q1

REPORT INFORMATION
  Report Type: Spontaneous
  Country: JP (occurrence: JP)
  Receive Date: 20220228
  Receipt Date: 20220228
  Transmission Date: 20220423
  Serious: Yes (Death)
  Sender: FDA-Public Use
  Company Number: JP-ELI_LILLY_AND_COMPANY-JP202202010979

PATIENT
  Age: 68 Year
  Sex: Female
  Weight: 55.2 kg

DRUGS (11)
  1. ADCIRCA [Suspect]
     Active Substance: TADALAFIL
     Indication: Pulmonary arterial hypertension
     Dosage: 40 MG, UNKNOWN
     Route: 065
  2. UPTRAVI [Suspect]
     Active Substance: SELEXIPAG
     Indication: Pulmonary arterial hypertension
     Dosage: 0.2 MG, BID
     Route: 048
     Dates: start: 20190212, end: 20190220
  3. UPTRAVI [Suspect]
     Active Substance: SELEXIPAG
     Dosage: 0.4 MG, BID
     Route: 048
     Dates: start: 20190221, end: 20190422
  4. UPTRAVI [Suspect]
     Active Substance: SELEXIPAG
     Dosage: 0.6 MG, BID
     Route: 048
     Dates: start: 20190423, end: 20190528
  5. UPTRAVI [Suspect]
     Active Substance: SELEXIPAG
     Dosage: 1 MG, BID
     Route: 048
     Dates: start: 20190529, end: 20190531
  6. UPTRAVI [Suspect]
     Active Substance: SELEXIPAG
     Dosage: 1.2 UNK
     Route: 048
     Dates: start: 20190601, end: 20211220
  7. OPSUMIT [Concomitant]
     Active Substance: MACITENTAN
     Indication: Pulmonary arterial hypertension
     Dosage: 2.5 MG, UNKNOWN
     Route: 065
     Dates: start: 20190601, end: 20190608
  8. OPSUMIT [Concomitant]
     Active Substance: MACITENTAN
     Dosage: 5 MG, UNKNOWN
     Route: 065
     Dates: start: 20190609, end: 20211220
  9. PROGRAF [Concomitant]
     Active Substance: TACROLIMUS
     Indication: Polymyositis
     Dosage: 4 MG, UNKNOWN
     Route: 065
     Dates: end: 20211220
  10. PREDNISOLONE [Concomitant]
     Active Substance: PREDNISOLONE
     Indication: Polymyositis
     Dosage: 5 MG, UNKNOWN
     Route: 065
     Dates: end: 20211018
  11. PREDNISOLONE [Concomitant]
     Active Substance: PREDNISOLONE
     Dosage: 50 MG, UNKNOWN
     Route: 065
     Dates: start: 20211019, end: 20211220

REACTIONS (3)
  - Muscular weakness [Fatal]
  - Electrolyte imbalance [Fatal]
  - Polymyositis [Fatal]

NARRATIVE: CASE EVENT DATE: 20211215
